FAERS Safety Report 24953645 (Version 5)
Quarter: 2025Q2

REPORT INFORMATION
  Report Type: Report from Study
  Country: US (occurrence: US)
  Receive Date: 20250211
  Receipt Date: 20250604
  Transmission Date: 20250717
  Serious: Yes (Hospitalization, Other)
  Sender: ABBVIE
  Company Number: US-ABBVIE-6124217

PATIENT
  Age: 57 Year
  Sex: Female
  Weight: 77.11 kg

DRUGS (5)
  1. HUMIRA [Suspect]
     Active Substance: ADALIMUMAB
     Indication: Rheumatoid arthritis
     Route: 058
     Dates: start: 20231005
  2. HUMIRA [Suspect]
     Active Substance: ADALIMUMAB
     Dosage: FORM STRENGTH: 40 MILLIGRAM
     Route: 058
  3. FOLIC ACID [Concomitant]
     Active Substance: FOLIC ACID
     Indication: Sjogren^s syndrome
  4. HYDROXYCHLOROQUINE SULFATE [Concomitant]
     Active Substance: HYDROXYCHLOROQUINE SULFATE
     Indication: Antithrombin III deficiency
  5. METHOTREXATE [Concomitant]
     Active Substance: METHOTREXATE
     Indication: Sjogren^s syndrome

REACTIONS (9)
  - Colitis ischaemic [Unknown]
  - Vomiting [Recovered/Resolved]
  - Rheumatoid arthritis [Not Recovered/Not Resolved]
  - Colitis [Not Recovered/Not Resolved]
  - Muscle spasms [Recovered/Resolved]
  - Gastrointestinal disorder [Not Recovered/Not Resolved]
  - Constipation [Not Recovered/Not Resolved]
  - Diarrhoea [Not Recovered/Not Resolved]
  - Lichen planopilaris [Not Recovered/Not Resolved]

NARRATIVE: CASE EVENT DATE: 20250203
